FAERS Safety Report 9037048 (Version 1)
Quarter: 2013Q1

REPORT INFORMATION
  Report Type: Spontaneous
  Country: US (occurrence: None)
  Receive Date: 20130118
  Receipt Date: 20130118
  Transmission Date: 20140127
  Serious: Yes (Other)
  Sender: FDA-Public Use
  Company Number: None

PATIENT
  Age: 62 Year
  Sex: Male
  Weight: 76.8 kg

DRUGS (1)
  1. AFLIBERCEPT [Suspect]
     Indication: COLORECTAL CANCER METASTATIC
     Dosage: 300MG Q2WEEK, IV DRIP
     Route: 041
     Dates: start: 20121102, end: 20121102

REACTIONS (2)
  - Proteinuria [None]
  - Blood creatinine increased [None]
